FAERS Safety Report 10684649 (Version 1)
Quarter: 2014Q4

REPORT INFORMATION
  Report Type: Spontaneous
  Country: BR (occurrence: None)
  Receive Date: 20141229
  Receipt Date: 20141229
  Transmission Date: 20150529
  Serious: Yes (Disabling, Other)
  Sender: FDA-Public Use
  Company Number: 2014S1001623

PATIENT
  Age: 78 Year
  Sex: Male

DRUGS (7)
  1. DONAREN [Concomitant]
     Active Substance: TRAZODONE HYDROCHLORIDE
  2. VONTAB CUORE [Concomitant]
  3. SOMALGIN [Concomitant]
     Active Substance: ASPIRIN\DIHYDROXYALUMINUM AMINOACETATE ANHYDROUS\MAGNESIUM CARBONATE
  4. COMBODART [Concomitant]
     Active Substance: DUTASTERIDE\TAMSULOSIN
  5. MIOSAN [Concomitant]
     Active Substance: CYCLOBENZAPRINE
  6. CONCOR [Concomitant]
     Active Substance: BISOPROLOL FUMARATE
  7. LIVALO [Suspect]
     Active Substance: PITAVASTATIN CALCIUM
     Indication: HYPERCHOLESTEROLAEMIA
     Route: 048
     Dates: start: 201410, end: 201410

REACTIONS (5)
  - Sciatica [None]
  - Impaired work ability [None]
  - Insomnia [None]
  - Polymyalgia rheumatica [None]
  - Gait disturbance [None]

NARRATIVE: CASE EVENT DATE: 201410
